FAERS Safety Report 13714580 (Version 5)
Quarter: 2017Q3

REPORT INFORMATION
  Report Type: Report from Study
  Country: US (occurrence: US)
  Receive Date: 20170704
  Receipt Date: 20170925
  Transmission Date: 20171127
  Serious: Yes (Hospitalization, Other)
  Sender: FDA-Public Use
  Company Number: US-B.I. PHARMACEUTICALS,INC./RIDGEFIELD-2017-BI-036552

PATIENT
  Age: 63 Year
  Sex: Female
  Weight: 65.7 kg

DRUGS (2)
  1. GILOTRIF [Suspect]
     Active Substance: AFATINIB
     Route: 048
     Dates: start: 20170713
  2. GILOTRIF [Suspect]
     Active Substance: AFATINIB
     Indication: NON-SMALL CELL LUNG CANCER
     Route: 048

REACTIONS (11)
  - Cystitis [Not Recovered/Not Resolved]
  - Stomatitis [Unknown]
  - Erythema [Not Recovered/Not Resolved]
  - Dehydration [Unknown]
  - Hypersensitivity [Unknown]
  - Alopecia [Unknown]
  - Dehydration [Recovered/Resolved with Sequelae]
  - Nail infection [Unknown]
  - Diarrhoea [Unknown]
  - Skin exfoliation [Not Recovered/Not Resolved]
  - Skin swelling [Not Recovered/Not Resolved]

NARRATIVE: CASE EVENT DATE: 20170822
